FAERS Safety Report 6962072-X (Version None)
Quarter: 2010Q3

REPORT INFORMATION
  Report Type: 
  Country: None (occurrence: None)
  Receive Date: 20100901
  Receipt Date: 20100901
  Transmission Date: 20110219
  Serious: Yes (Hospitalization)
  Sender: FDA-Public Use
  Company Number: None

PATIENT
  Age: 63 Year
  Sex: Female

DRUGS (1)
  1. XIGRIS [Suspect]
     Indication: SEPSIS
     Dosage: 0.024 MG/KG/HR CONTINUOUS IV DRIP
     Route: 041
     Dates: start: 20100625, end: 20100627

REACTIONS (1)
  - GASTROINTESTINAL HAEMORRHAGE [None]
